FAERS Safety Report 7115041-3 (Version None)
Quarter: 2010Q4

REPORT INFORMATION
  Report Type: 
  Country: None (occurrence: None)
  Receive Date: 20101122
  Receipt Date: 20101117
  Transmission Date: 20110411
  Serious: Yes (Other)
  Sender: FDA-Public Use
  Company Number: US-BAYER-200832200NA

PATIENT
  Age: 65 Year
  Sex: Male

DRUGS (2)
  1. CIPRO [Suspect]
     Indication: PROPHYLAXIS
     Route: 048
     Dates: start: 20080401
  2. LISINOPRIL [Concomitant]

REACTIONS (3)
  - GAIT DISTURBANCE [None]
  - TENDON PAIN [None]
  - TENDONITIS [None]
